FAERS Safety Report 8065052-9 (Version None)
Quarter: 2012Q1

REPORT INFORMATION
  Report Type: 
  Country: None (occurrence: None)
  Receive Date: 20120124
  Receipt Date: 20120117
  Transmission Date: 20120608
  Serious: Yes (Other)
  Sender: FDA-Public Use
  Company Number: US-PFIZER INC-2012013889

PATIENT
  Sex: Female

DRUGS (2)
  1. PRISTIQ [Suspect]
     Dosage: 50 MG, ALTERNATE DAY (EVERY OTHER DAY)
  2. PRISTIQ [Suspect]
     Dosage: 50 MG, UNK

REACTIONS (4)
  - PALPITATIONS [None]
  - HYPERTENSION [None]
  - WITHDRAWAL SYNDROME [None]
  - MALAISE [None]
